FAERS Safety Report 4942948-5 (Version None)
Quarter: 2006Q1

REPORT INFORMATION
  Report Type: 
  Country: None (occurrence: None)
  Receive Date: 20060309
  Receipt Date: 20060221
  Transmission Date: 20060701
  Serious: Yes (Death, Hospitalization)
  Sender: FDA-Public Use
  Company Number: 2006-BP-02145RO

PATIENT
  Age: 73 Year
  Sex: Female

DRUGS (2)
  1. METHOTREXATE [Suspect]
     Indication: RHEUMATOID ARTHRITIS
     Dosage: UNK DOSE X 11 MONTHS; RAISE TO 12.5 MG/WEEK 1 MONTH PRIOR TO EVENT, PO
     Route: 048
  2. PREDNISONE TAB [Concomitant]

REACTIONS (7)
  - HYDROPNEUMOTHORAX [None]
  - INFECTION [None]
  - JOINT DESTRUCTION [None]
  - NODULE [None]
  - SKIN NECROSIS [None]
  - SKIN ULCER [None]
  - SUBCUTANEOUS EMPHYSEMA [None]
